FAERS Safety Report 23476109 (Version 1)
Quarter: 2024Q1

REPORT INFORMATION
  Report Type: Report from Study
  Country: US (occurrence: US)
  Receive Date: 20240204
  Receipt Date: 20240204
  Transmission Date: 20240410
  Serious: No
  Sender: FDA-Public Use
  Company Number: US-EXELIXIS-CABO-23061768

PATIENT
  Age: 78 Year
  Sex: Male

DRUGS (11)
  1. CABOMETYX [Suspect]
     Active Substance: CABOZANTINIB S-MALATE
     Indication: Renal cell carcinoma
     Dosage: 40 MG, QD
     Route: 048
     Dates: start: 20230301
  2. CABOMETYX [Suspect]
     Active Substance: CABOZANTINIB S-MALATE
     Indication: Metastases to liver
  3. ALDACTONE [Concomitant]
     Active Substance: SPIRONOLACTONE
  4. AMILORIDE [Concomitant]
     Active Substance: AMILORIDE
  5. CARAFATE [Concomitant]
     Active Substance: SUCRALFATE
  6. COLACE [Concomitant]
     Active Substance: DOCUSATE SODIUM
  7. FLOMAX [Concomitant]
     Active Substance: TAMSULOSIN HYDROCHLORIDE
  8. GABAPENTIN [Concomitant]
     Active Substance: GABAPENTIN
  9. PROTONIX [Concomitant]
     Active Substance: PANTOPRAZOLE SODIUM
  10. SENNA [Concomitant]
     Active Substance: SENNA LEAF\SENNOSIDES\SENNOSIDES A AND B
  11. XARELTO [Concomitant]
     Active Substance: RIVAROXABAN

REACTIONS (8)
  - Insomnia [Unknown]
  - Chapped lips [Unknown]
  - Genital ulceration [Unknown]
  - Pruritus [Unknown]
  - Fatigue [Unknown]
  - Dizziness [Unknown]
  - Dry skin [Unknown]
  - Oral mucosal blistering [Recovering/Resolving]

NARRATIVE: CASE EVENT DATE: 20230301
